FAERS Safety Report 14624379 (Version 1)
Quarter: 2018Q1

REPORT INFORMATION
  Report Type: Spontaneous
  Country: US (occurrence: US)
  Receive Date: 20180309
  Receipt Date: 20180309
  Transmission Date: 20180509
  Serious: Yes (Disabling)
  Sender: FDA-Public Use
  Company Number: None

PATIENT
  Age: 42 Year
  Weight: 71.55 kg

DRUGS (11)
  1. XANAX [Concomitant]
     Active Substance: ALPRAZOLAM
  2. ATENOLOL. [Concomitant]
     Active Substance: ATENOLOL
  3. PREVACID [Concomitant]
     Active Substance: LANSOPRAZOLE
  4. YAZ [Concomitant]
     Active Substance: DROSPIRENONE\ETHINYL ESTRADIOL
  5. OSELTAMIVIR PHOS 75 MG CAPSULE [Suspect]
     Active Substance: OSELTAMIVIR PHOSPHATE
     Indication: INFLUENZA
     Dosage: ?          QUANTITY:1 CAPSULE(S);?
     Route: 048
     Dates: start: 20180218, end: 20180221
  6. VITAMIN C [Concomitant]
     Active Substance: ASCORBIC ACID
  7. FLONASE [Concomitant]
     Active Substance: FLUTICASONE PROPIONATE
  8. LEXAPRO [Concomitant]
     Active Substance: ESCITALOPRAM OXALATE
  9. TYLENOL [Concomitant]
     Active Substance: ACETAMINOPHEN
  10. ADVIL [Concomitant]
     Active Substance: IBUPROFEN
  11. VITAMIN D [Concomitant]
     Active Substance: CHOLECALCIFEROL

REACTIONS (5)
  - Palpitations [None]
  - Hot flush [None]
  - Tremor [None]
  - Anxiety [None]
  - Feeling cold [None]

NARRATIVE: CASE EVENT DATE: 20180222
